FAERS Safety Report 7990755-1 (Version None)
Quarter: 2011Q4

REPORT INFORMATION
  Report Type: 
  Country: None (occurrence: None)
  Receive Date: 20111219
  Receipt Date: 20111219
  Transmission Date: 20120403
  Serious: Yes (Other)
  Sender: FDA-Public Use
  Company Number: None

PATIENT
  Age: 70 Year
  Sex: Female
  Weight: 86.182 kg

DRUGS (1)
  1. VESICARE [Suspect]
     Indication: MICTURITION URGENCY
     Dosage: 1
     Route: 048
     Dates: start: 20110920, end: 20111006

REACTIONS (2)
  - LIP SWELLING [None]
  - SWELLING FACE [None]
